FAERS Safety Report 4919199-3 (Version None)
Quarter: 2006Q1

REPORT INFORMATION
  Report Type: 
  Country: None (occurrence: None)
  Receive Date: 20060113
  Receipt Date: 20051201
  Transmission Date: 20060701
  Serious: No
  Sender: FDA-Public Use
  Company Number: 2005SP04263

PATIENT
  Age: 43 Year
  Sex: Male
  Weight: 102.0593 kg

DRUGS (7)
  1. LUNESTA [Suspect]
     Indication: INSOMNIA
     Dosage: 3 MG;HS;ORAL
     Route: 048
     Dates: start: 20051101, end: 20051201
  2. QUINAPRIL [Concomitant]
  3. ZOLOFT [Concomitant]
  4. PROTONIX [Concomitant]
  5. CRESTOR [Concomitant]
  6. ZETIA [Concomitant]
  7. NABUMETONE [Concomitant]

REACTIONS (1)
  - ERECTILE DYSFUNCTION [None]
